FAERS Safety Report 5126519-6 (Version None)
Quarter: 2006Q4

REPORT INFORMATION
  Report Type: 
  Country: None (occurrence: None)
  Receive Date: 20061010
  Receipt Date: 20060927
  Transmission Date: 20070319
  Serious: Yes (Death)
  Sender: FDA-Public Use
  Company Number: S06-USA-03298-01

PATIENT
  Age: 41 Year
  Sex: Female

DRUGS (5)
  1. LEXAPRO [Suspect]
  2. KADIAN [Suspect]
     Indication: BACK PAIN
     Dosage: 60 MG QD PO
     Route: 048
     Dates: start: 20031101, end: 20031101
  3. VALIUM [Suspect]
     Indication: DEPRESSION
     Dates: end: 20031101
  4. AMITRIPTYLINE HCL [Suspect]
     Indication: DEPRESSION
     Dates: end: 20031101
  5. OXYCONTIN [Concomitant]

REACTIONS (2)
  - DRUG LEVEL INCREASED [None]
  - MULTIPLE DRUG OVERDOSE [None]
